FAERS Safety Report 12219033 (Version 2)
Quarter: 2016Q2

REPORT INFORMATION
  Report Type: Report from Study
  Country: BE (occurrence: BE)
  Receive Date: 20160329
  Receipt Date: 20160610
  Transmission Date: 20160815
  Serious: Yes (Hospitalization)
  Sender: FDA-Public Use
  Company Number: BE-ABBVIE-15P-013-1478039-00

PATIENT
  Age: 74 Year
  Sex: Male

DRUGS (15)
  1. ZALDIAR [Concomitant]
     Active Substance: ACETAMINOPHEN\TRAMADOL HYDROCHLORIDE
     Indication: PRODUCT USED FOR UNKNOWN INDICATION
     Route: 065
  2. DUODOPA [Suspect]
     Active Substance: CARBIDOPA\LEVODOPA
     Dosage: AM=8ML; CD=3.8 ML/HR (AM), 3.6ML/HR (PM) DURING 16HRS; ED=3.5ML
     Route: 050
     Dates: start: 20151125, end: 20160119
  3. DUODOPA [Suspect]
     Active Substance: CARBIDOPA\LEVODOPA
     Dosage: DOSES CONTINUOUSLY MONITORED AND ADAPTED
     Route: 050
     Dates: start: 20150522, end: 20150821
  4. XARELTO [Concomitant]
     Active Substance: RIVAROXABAN
     Indication: PRODUCT USED FOR UNKNOWN INDICATION
     Route: 065
  5. DUODOPA [Suspect]
     Active Substance: CARBIDOPA\LEVODOPA
     Indication: PARKINSON^S DISEASE
     Dosage: AM=8ML; CD=3.2ML/H DURING 16HRS; ED=3ML
     Route: 050
     Dates: start: 20150518, end: 20150522
  6. DUODOPA [Suspect]
     Active Substance: CARBIDOPA\LEVODOPA
     Dosage: AM=8ML; CD=4.1ML/H (AM) 3.8ML/H (PM) FOR 16HRS; ED=3.5ML
     Route: 050
     Dates: start: 20151101, end: 20151102
  7. DUODOPA [Suspect]
     Active Substance: CARBIDOPA\LEVODOPA
     Dosage: AM=8ML; CD=4.1ML/H (AM) 3.8ML/H (PM) FOR 16HRS; ED=3.5ML
     Route: 050
     Dates: start: 20151102, end: 20151125
  8. DUODOPA [Suspect]
     Active Substance: CARBIDOPA\LEVODOPA
     Dosage: AM= 8ML; CD= 4ML/H DURING 16 HRS; ED= 3.5 ML
     Route: 050
     Dates: start: 20160322
  9. SOTALOL. [Concomitant]
     Active Substance: SOTALOL
     Indication: PRODUCT USED FOR UNKNOWN INDICATION
     Route: 065
  10. DUODOPA [Suspect]
     Active Substance: CARBIDOPA\LEVODOPA
     Dosage: AM=8ML; CD=4 ML/HR (AM), 3.5ML/HR (PM) DURING 8HRS; ED=3.5ML
     Route: 050
     Dates: start: 20160119, end: 20160322
  11. STALEVO [Concomitant]
     Active Substance: CARBIDOPA\ENTACAPONE\LEVODOPA
     Indication: PRODUCT USED FOR UNKNOWN INDICATION
     Dosage: FORM STRENGTH: 150MG/37.5MG/200MG; IF NEEDED
     Route: 065
  12. DUODOPA [Suspect]
     Active Substance: CARBIDOPA\LEVODOPA
     Dosage: AM=8ML; CD=4.1ML/H (AM) AND 3.8ML/H (PM) DURING 16HRS; ED=3.5ML
     Route: 050
     Dates: start: 20150930, end: 20151101
  13. MIRAPEXIN [Concomitant]
     Active Substance: PRAMIPEXOLE
     Dosage: IF NEEDED
     Route: 065
  14. DUODOPA [Suspect]
     Active Substance: CARBIDOPA\LEVODOPA
     Dosage: AM=8ML; CD=4.1ML/H DURING 16HRS; ED=3.5ML
     Route: 050
     Dates: start: 20150821, end: 20150930
  15. MIRAPEXIN [Concomitant]
     Active Substance: PRAMIPEXOLE
     Indication: PARKINSON^S DISEASE
     Route: 065

REACTIONS (9)
  - Acute pulmonary oedema [Unknown]
  - Keloid scar [Unknown]
  - Dyskinesia [Not Recovered/Not Resolved]
  - Drug administered at inappropriate site [Not Recovered/Not Resolved]
  - Stoma site discharge [Recovered/Resolved]
  - Device alarm issue [Recovered/Resolved]
  - Dyspnoea [Unknown]
  - Stoma site erythema [Unknown]
  - Overdose [Unknown]

NARRATIVE: CASE EVENT DATE: 20151101
